FAERS Safety Report 4485604-2 (Version None)
Quarter: 2004Q4

REPORT INFORMATION
  Report Type: 
  Country: None (occurrence: None)
  Receive Date: 20041021
  Receipt Date: 20041006
  Transmission Date: 20050328
  Serious: Yes (Hospitalization)
  Sender: FDA-Public Use
  Company Number: F01200401654

PATIENT
  Age: 67 Year
  Sex: Female

DRUGS (12)
  1. (OXALIPLATIN) - SOLUTION - 65 MG/M2 [Suspect]
     Indication: COLORECTAL CANCER
     Dosage: 65 MG/M2 Q2W, INTRAVENOUS NOS
     Route: 042
     Dates: start: 20040520, end: 20040520
  2. FLUOROURACIL [Suspect]
     Dosage: 500 MG/M2 BOLUS ON D1, D8 AND D15, Q4W, INTRAVENOUS BOLUS A FEW MINS
     Route: 040
     Dates: start: 20040527, end: 20040527
  3. LEUCOVORIN CALCIUM [Suspect]
     Dosage: 20 MG/M2 ON D1, D8 AND D15, Q4W, INTRAVENOUS BOLUS A FEW MINS
     Route: 040
     Dates: start: 20040527, end: 20040527
  4. AVASTIN [Suspect]
     Dosage: 5 MG/KG OVER 30-90 MINUTES IV INFUSION OPN D1-D15, Q4W, INTRAVENOUS NOS
     Route: 042
     Dates: start: 20040520, end: 20040520
  5. ATIVAN [Concomitant]
  6. ACETAMINOPHEN AND HYDROCODONE BITARTRATE [Concomitant]
  7. MEGACE [Concomitant]
  8. PANTOPRAZOLE SODIUM [Concomitant]
  9. LOPERAMIDE HCL [Concomitant]
  10. PHENERGAN [Concomitant]
  11. ONDANSETRON [Concomitant]
  12. METOCLOPRAMIDE [Concomitant]

REACTIONS (10)
  - ANOREXIA [None]
  - ASTHENIA [None]
  - BLOOD POTASSIUM DECREASED [None]
  - DEHYDRATION [None]
  - HYPOMAGNESAEMIA [None]
  - NAUSEA [None]
  - OESOPHAGITIS [None]
  - OXYGEN SATURATION DECREASED [None]
  - PULMONARY HILUM MASS [None]
  - VOMITING [None]
